FAERS Safety Report 9461642 (Version 1)
Quarter: 2013Q3

REPORT INFORMATION
  Report Type: Spontaneous
  Country: FR (occurrence: FR)
  Receive Date: 20130816
  Receipt Date: 20130816
  Transmission Date: 20140515
  Serious: Yes (Life-Threatening)
  Sender: FDA-Public Use
  Company Number: FR-JNJFOC-20130707098

PATIENT
  Age: 65 Year
  Sex: Male

DRUGS (7)
  1. REOPRO [Suspect]
     Indication: PRODUCT USED FOR UNKNOWN INDICATION
     Route: 042
     Dates: start: 20130613
  2. REOPRO [Suspect]
     Indication: PRODUCT USED FOR UNKNOWN INDICATION
     Route: 042
     Dates: start: 20130613
  3. EFFIENT [Suspect]
     Indication: PRODUCT USED FOR UNKNOWN INDICATION
     Dosage: 6 TABLETS
     Route: 048
     Dates: start: 20130613
  4. HEPARINE CHOAY [Suspect]
     Indication: PRODUCT USED FOR UNKNOWN INDICATION
     Route: 042
     Dates: start: 20130614, end: 20130622
  5. KARDEGIC [Concomitant]
     Indication: PRODUCT USED FOR UNKNOWN INDICATION
     Route: 048
     Dates: start: 20130613, end: 20130613
  6. ANGIOX [Concomitant]
     Indication: PRODUCT USED FOR UNKNOWN INDICATION
     Route: 042
     Dates: start: 20130613, end: 20130613
  7. ANGIOX [Concomitant]
     Indication: PRODUCT USED FOR UNKNOWN INDICATION
     Route: 042
     Dates: start: 20130613, end: 20130613

REACTIONS (3)
  - Pulmonary alveolar haemorrhage [Recovering/Resolving]
  - Platelet count decreased [Unknown]
  - Cardiac arrest [Recovering/Resolving]
